FAERS Safety Report 6183786-8 (Version None)
Quarter: 2009Q2

REPORT INFORMATION
  Report Type: 
  Country: None (occurrence: None)
  Receive Date: 20090506
  Receipt Date: 20090506
  Transmission Date: 20091009
  Serious: No
  Sender: FDA-Public Use
  Company Number: None

PATIENT
  Age: 61 Year
  Sex: Male
  Weight: 104 kg

DRUGS (1)
  1. SIMVASTATIN [Suspect]
     Dosage: 80 MG HS PO
     Route: 048
     Dates: start: 20080402, end: 20090319

REACTIONS (1)
  - RHABDOMYOLYSIS [None]
